FAERS Safety Report 6826795-5 (Version None)
Quarter: 2010Q3

REPORT INFORMATION
  Report Type: 
  Country: None (occurrence: None)
  Receive Date: 20100709
  Receipt Date: 20100628
  Transmission Date: 20110219
  Serious: Yes (Death)
  Sender: FDA-Public Use
  Company Number: CA-TEVA-239352USA

PATIENT
  Age: 22 Year
  Sex: Male

DRUGS (2)
  1. PROPOFOL [Suspect]
     Dosage: 90-100UG/KG/MINUTE
  2. FENTANYL [Concomitant]

REACTIONS (7)
  - AGITATION [None]
  - CIRCULATORY COLLAPSE [None]
  - HYPERKALAEMIA [None]
  - HYPOTENSION [None]
  - METABOLIC ACIDOSIS [None]
  - PROPOFOL INFUSION SYNDROME [None]
  - RENAL FAILURE [None]
